FAERS Safety Report 4705269-1 (Version None)
Quarter: 2005Q2

REPORT INFORMATION
  Report Type: 
  Country: None (occurrence: None)
  Receive Date: 20050629
  Receipt Date: 20050623
  Transmission Date: 20051028
  Serious: Yes (Death)
  Sender: FDA-Public Use
  Company Number: 200511275BWH

PATIENT

DRUGS (1)
  1. NIMOTOP [Suspect]
     Dosage: NTRAVENOUS
     Route: 042

REACTIONS (3)
  - CARDIO-RESPIRATORY ARREST [None]
  - GENERAL PHYSICAL HEALTH DETERIORATION [None]
  - INCORRECT ROUTE OF DRUG ADMINISTRATION [None]
